FAERS Safety Report 5491478-3 (Version None)
Quarter: 2007Q4

REPORT INFORMATION
  Report Type: 
  Country: None (occurrence: None)
  Receive Date: 20071022
  Receipt Date: 20071015
  Transmission Date: 20080405
  Serious: Yes (Life-Threatening, Hospitalization)
  Sender: FDA-Public Use
  Company Number: PHEH2007US05656

PATIENT
  Age: 51 Year
  Sex: Female
  Weight: 80.725 kg

DRUGS (14)
  1. ZELNORM [Suspect]
     Indication: BOWEL MOVEMENT IRREGULARITY
     Dosage: 6 MG, BID
     Route: 048
     Dates: start: 20041001, end: 20070412
  2. NEXIUM [Concomitant]
     Indication: GASTROOESOPHAGEAL REFLUX DISEASE
     Dates: start: 19960801
  3. REGLAN [Concomitant]
     Indication: NAUSEA
     Dosage: 5 MG, UNK
     Route: 048
     Dates: start: 19980801
  4. XANAX [Concomitant]
     Indication: ANXIETY
     Dosage: 1 MG, UNK
     Route: 048
     Dates: start: 20051001, end: 20060101
  5. XANAX [Concomitant]
     Dosage: 1 MG
  6. XANAX [Concomitant]
     Dosage: 0. 5 MG QHS
     Dates: start: 20070828
  7. ALBUTEROL [Concomitant]
     Indication: CHRONIC OBSTRUCTIVE PULMONARY DISEASE
     Dosage: UNK, BID
     Dates: start: 20010601
  8. OXYGEN [Concomitant]
     Indication: CHRONIC OBSTRUCTIVE PULMONARY DISEASE
     Dosage: 3 LITERS
  9. ASPIRIN [Concomitant]
     Dosage: 81 MG, UNK
     Route: 048
  10. SYNTHROID [Concomitant]
     Indication: HYPOTHYROIDISM
     Dosage: 0.1 MG, QD
     Dates: start: 19960601
  11. STRATTERA [Concomitant]
     Dosage: 40 MG, PRN
     Dates: start: 20060201
  12. ADVAIR DISKUS 100/50 [Concomitant]
     Indication: CHRONIC OBSTRUCTIVE PULMONARY DISEASE
     Dosage: UNK, BID
     Dates: start: 20060201
  13. METOPROLOL [Concomitant]
     Indication: BLOOD PRESSURE
     Dosage: 25 MG, BID
     Dates: start: 20051001
  14. ISMO - SLOW RELEASE [Concomitant]
     Indication: BLOOD PRESSURE
     Dosage: 30 MG, QD

REACTIONS (19)
  - ANGINA UNSTABLE [None]
  - BALANCE DISORDER [None]
  - BOWEL MOVEMENT IRREGULARITY [None]
  - BREATH SOUNDS ABNORMAL [None]
  - CARDIAC MURMUR [None]
  - CATHETERISATION CARDIAC [None]
  - CHEST PAIN [None]
  - CORONARY ARTERIAL STENT INSERTION [None]
  - CORONARY ARTERY OCCLUSION [None]
  - DIZZINESS [None]
  - FATIGUE [None]
  - GAIT DISTURBANCE [None]
  - HEADACHE [None]
  - OEDEMA PERIPHERAL [None]
  - PRODUCTIVE COUGH [None]
  - PULMONARY OEDEMA [None]
  - PYLORIC STENOSIS [None]
  - SOMNOLENCE [None]
  - VOMITING [None]
